FAERS Safety Report 5429943-7 (Version None)
Quarter: 2007Q3

REPORT INFORMATION
  Report Type: 
  Country: None (occurrence: None)
  Receive Date: 20070829
  Receipt Date: 20070709
  Transmission Date: 20080115
  Serious: No
  Sender: FDA-Public Use
  Company Number: US-BOEHRINGER INGELHEIM PHARMACEUTICALS, INC.-2007-BP-11535BP

PATIENT
  Sex: Female
  Weight: 136 kg

DRUGS (36)
  1. CATAPRES-TTS-1 [Suspect]
     Indication: HYPERTENSION
     Route: 061
     Dates: start: 20050101, end: 20070407
  2. CATAPRES [Suspect]
     Indication: HYPERTENSION
     Route: 048
  3. SPIRONOLACTONE [Concomitant]
     Route: 048
  4. NORVASC [Concomitant]
     Route: 048
  5. COREG [Concomitant]
     Route: 048
  6. LASIX [Concomitant]
     Route: 048
  7. HYZAAR [Concomitant]
  8. METHOTREXATE [Concomitant]
  9. PEPCID [Concomitant]
     Route: 048
  10. LANTUS [Concomitant]
  11. ZAROXOLYN [Concomitant]
     Route: 048
  12. LISINOPRIL [Concomitant]
     Route: 048
  13. CLONIDINE [Concomitant]
     Route: 048
  14. PLAVIX [Concomitant]
     Route: 048
  15. ASPIRIN [Concomitant]
     Route: 048
  16. ZOCOR [Concomitant]
     Route: 048
  17. PREDNISONE [Concomitant]
     Route: 048
  18. RELAFEN [Concomitant]
     Route: 048
  19. NEURONTIN [Concomitant]
     Route: 048
  20. LAMICTAL [Concomitant]
     Route: 048
  21. HUMALOG [Concomitant]
  22. METFORMIN [Concomitant]
     Route: 048
  23. FOLIC ACID [Concomitant]
     Route: 048
  24. MIACALCIN [Concomitant]
     Route: 045
  25. SLOW-MAG [Concomitant]
     Route: 048
  26. CITRACAL + D [Concomitant]
     Route: 048
  27. SOLGAR VM-75 [Concomitant]
     Indication: VITAMIN SUPPLEMENTATION
     Route: 048
  28. SOLGAR-B [Concomitant]
     Route: 048
  29. SOLGAR VITAMIN-C W/ ROSE HIPS [Concomitant]
     Route: 048
  30. FLONASE [Concomitant]
     Route: 045
  31. CAPZASIN-P [Concomitant]
     Route: 061
  32. NITROGLYCERIN [Concomitant]
     Indication: CHEST PAIN
  33. MAXAIR [Concomitant]
     Route: 055
  34. AZMACORT [Concomitant]
     Route: 048
  35. LIDOCAINE 5% [Concomitant]
     Route: 061
  36. TYLENOL XS [Concomitant]
     Indication: PAIN
     Route: 048

REACTIONS (9)
  - APPLICATION SITE PRURITUS [None]
  - APPLICATION SITE RASH [None]
  - APPLICATION SITE VESICLES [None]
  - BLOOD PRESSURE SYSTOLIC INCREASED [None]
  - FEELING JITTERY [None]
  - IRRITABILITY [None]
  - MEMORY IMPAIRMENT [None]
  - NERVOUSNESS [None]
  - SOMNOLENCE [None]
